FAERS Safety Report 22044505 (Version 2)
Quarter: 2023Q2

REPORT INFORMATION
  Report Type: Spontaneous
  Country: GB (occurrence: GB)
  Receive Date: 20230228
  Receipt Date: 20230615
  Transmission Date: 20230721
  Serious: Yes (Hospitalization, Other)
  Sender: FDA-Public Use
  Company Number: GB-MYLANLABS-2023M1020786

PATIENT
  Sex: Male

DRUGS (12)
  1. CLOZARIL [Suspect]
     Active Substance: CLOZAPINE
     Indication: Schizophrenia
     Dosage: 150 MILLIGRAM, QD
     Route: 048
     Dates: start: 20101105, end: 20230213
  2. CLOZARIL [Suspect]
     Active Substance: CLOZAPINE
     Dosage: 325 MILLIGRAM, QD
     Route: 048
     Dates: start: 20101105, end: 20230213
  3. APIXABAN [Concomitant]
     Active Substance: APIXABAN
     Dosage: 5 MILLIGRAM, BID
     Route: 048
  4. CARBOCYSTEINE [Concomitant]
     Active Substance: CARBOCYSTEINE
     Dosage: 375 MILLIGRAM, QID (2 TABLETS TDS)
     Route: 048
  5. Docosahexaenoic acid ethyl ester;Eicosapentaenoic acid ethyl ester [Concomitant]
     Dosage: 1 DOSAGE FORM, BID (460 MG/380 MG)
     Route: 048
  6. MIRTAZAPINE [Concomitant]
     Active Substance: MIRTAZAPINE
     Dosage: 45 MILLIGRAM, QD (NOCTE STOPPED IN HRI)
     Route: 048
  7. LACTULOSE [Concomitant]
     Active Substance: LACTULOSE
     Dosage: 10 MILLILITER, BID (3.1-3.7G/5ML, STOPPED IN HRI)
     Route: 048
  8. VALPROATE SODIUM [Concomitant]
     Active Substance: VALPROATE SODIUM
     Dosage: 150 MILLIGRAM, QD (MANE, SWITCHED TO LEVETIRACETAM IN HRI)
     Route: 048
  9. VALPROATE SODIUM [Concomitant]
     Active Substance: VALPROATE SODIUM
     Dosage: 500 MILLIGRAM, BID  (SWITCHED TO LEVETIRACETAM IN HRI)
     Route: 048
  10. LANOLIN\ZINC OXIDE [Concomitant]
     Active Substance: LANOLIN\ZINC OXIDE
     Dosage: UNK (PRP, ANTISEPTIC HEALING CREAM (TEVA UK LTD))
     Route: 061
  11. PARAFFIN [Concomitant]
     Active Substance: PARAFFIN
     Dosage: 11 PERCENT
     Route: 061
  12. ALBUTEROL [Concomitant]
     Active Substance: ALBUTEROL
     Dosage: 100 MICROGRAM, QID (INHALE 2 DOSES FOUR TIMES A DAY AS NEEDED)
     Route: 055

REACTIONS (11)
  - COVID-19 pneumonia [Recovered/Resolved]
  - Pancreatitis [Not Recovered/Not Resolved]
  - C-reactive protein increased [Not Recovered/Not Resolved]
  - Blood iron decreased [Unknown]
  - Atelectasis [Recovered/Resolved with Sequelae]
  - Blood albumin decreased [Unknown]
  - Blood alkaline phosphatase increased [Not Recovered/Not Resolved]
  - Neutrophil count increased [Not Recovered/Not Resolved]
  - Gamma-glutamyltransferase increased [Unknown]
  - Colitis [Not Recovered/Not Resolved]
  - Pleural effusion [Recovered/Resolved with Sequelae]

NARRATIVE: CASE EVENT DATE: 20230104
